FAERS Safety Report 9814935 (Version 1)
Quarter: 2014Q1

REPORT INFORMATION
  Report Type: Not Available
  Country: None (occurrence: US)
  Receive Date: 20140113
  Receipt Date: 20140113
  Transmission Date: 20141002
  Serious: Yes (Hospitalization)
  Sender: FDA-Public Use
  Company Number: US-ONYX-2014-0077

PATIENT
  Age: 69 Year
  Sex: Female

DRUGS (18)
  1. KYPROLIS [Suspect]
     Indication: PLASMA CELL MYELOMA
     Route: 042
     Dates: start: 20131211
  2. DILTIAZEM [Concomitant]
     Indication: HEART RATE INCREASED
     Route: 048
  3. OMEPRAZOLE [Concomitant]
     Indication: GASTROOESOPHAGEAL REFLUX DISEASE
  4. LEVOFLOXACIN [Concomitant]
     Indication: INFECTION
  5. PROCRIT [Concomitant]
     Indication: RED BLOOD CELL ABNORMALITY
  6. LASIX [Concomitant]
     Indication: FLUID IMBALANCE
  7. POMALYST [Concomitant]
     Indication: PRODUCT USED FOR UNKNOWN INDICATION
  8. DILAUDID [Concomitant]
     Indication: PAIN
  9. VITAMIN D3 [Concomitant]
     Indication: SUPPLEMENTATION THERAPY
  10. MAGNESIUM [Concomitant]
     Indication: SUPPLEMENTATION THERAPY
  11. CYANOCOBALMIN [Concomitant]
     Indication: INJECTION
  12. LEVONOX [Concomitant]
     Indication: PROPHYLAXIS
  13. RANITADINE [Concomitant]
     Indication: ABDOMINAL DISCOMFORT
  14. ACYCLOVIR [Concomitant]
     Indication: ORAL HERPES
  15. LORAZEPAM [Concomitant]
     Indication: RELAXATION THERAPY
  16. ZOMETA [Concomitant]
     Indication: SUPPLEMENTATION THERAPY
  17. ZOFRAN [Concomitant]
     Indication: NAUSEA
  18. COUMADIN [Concomitant]
     Indication: THROMBOSIS

REACTIONS (3)
  - Diarrhoea [Recovered/Resolved]
  - Dehydration [Recovered/Resolved]
  - Upper respiratory tract infection [Recovering/Resolving]
